FAERS Safety Report 5084859-3 (Version None)
Quarter: 2006Q3

REPORT INFORMATION
  Report Type: 
  Country: None (occurrence: None)
  Receive Date: 20060815
  Receipt Date: 20060803
  Transmission Date: 20061208
  Serious: Yes (Life-Threatening)
  Sender: FDA-Public Use
  Company Number: 2006-01469

PATIENT
  Age: 59 Year

DRUGS (4)
  1. VELCADE [Suspect]
     Indication: MULTIPLE MYELOMA
     Dosage: 1.30 MG/M2, INTRAVENOUS
     Route: 042
     Dates: start: 20060307, end: 20060524
  2. DOXORUBICIN HCL [Suspect]
     Indication: MULTIPLE MYELOMA
     Dosage: 9.00 MG/M2, INTRAVENOUS
     Route: 042
     Dates: start: 20060307, end: 20060524
  3. DEXAMETHASONE [Concomitant]
     Indication: MULTIPLE MYELOMA
     Dosage: 40.00 MG, ORAL
     Route: 048
     Dates: start: 20060307, end: 20060524
  4. BISPHOSPHONATES [Concomitant]

REACTIONS (1)
  - GASTRIC ULCER HAEMORRHAGE [None]
